FAERS Safety Report 11919647 (Version 2)
Quarter: 2016Q1

REPORT INFORMATION
  Report Type: Spontaneous
  Country: US (occurrence: US)
  Receive Date: 20160115
  Receipt Date: 20160316
  Transmission Date: 20160526
  Serious: No
  Sender: FDA-Public Use
  Company Number: US-PFIZER INC-2015456158

PATIENT
  Age: 77 Year
  Sex: Female

DRUGS (4)
  1. VFEND [Suspect]
     Active Substance: VORICONAZOLE
     Dosage: UNK
     Dates: start: 201512, end: 201601
  2. MUCOMYST /00082801/ [Concomitant]
     Indication: SECRETION DISCHARGE
     Dosage: 4ML EACH TREATMENT, NO MORE THAN TWICE A DAY
     Dates: start: 201511, end: 201602
  3. ALBUTEROL /00139501/ [Concomitant]
     Active Substance: ALBUTEROL
     Indication: OBSTRUCTIVE AIRWAYS DISORDER
     Dosage: 1 VIAL, TWICE A DAY AS NEEDED, UNKNOWN DOSAGE
     Dates: start: 201508
  4. VFEND [Suspect]
     Active Substance: VORICONAZOLE
     Indication: PULMONARY MYCOSIS
     Dosage: 200 MG, 2X/DAY (DID NOT TAKE HER DOSE ON EVENING OF 15DEC2015)
     Route: 048
     Dates: start: 20151214, end: 20151216

REACTIONS (4)
  - Nervousness [Recovered/Resolved]
  - Visual field defect [Recovered/Resolved]
  - Drug intolerance [Recovered/Resolved]
  - Anxiety [Recovered/Resolved]

NARRATIVE: CASE EVENT DATE: 20151214
